FAERS Safety Report 8732196 (Version 2)
Quarter: 2012Q4

REPORT INFORMATION
  Report Type: 
  Country: US (occurrence: US)
  Receive Date: 20120820
  Receipt Date: 20120829
  Transmission Date: 20130627
  Serious: Yes (Other)
  Sender: FDA-Public Use
  Company Number: US-BAYER-2012-084976

PATIENT
  Sex: Female

DRUGS (1)
  1. ULTRAVIST [Suspect]
     Indication: PRODUCT USED FOR UNKNOWN INDICATION
     Dosage: 150 ml, ONCE
     Route: 042

REACTIONS (6)
  - Anaphylactic reaction [None]
  - Hypotension [None]
  - Oedema [None]
  - Sneezing [None]
  - Cough [None]
  - Unevaluable event [None]
